FAERS Safety Report 15360808 (Version 1)
Quarter: 2018Q4

REPORT INFORMATION
  Report Type: Spontaneous
  Country: NL (occurrence: NL)
  Receive Date: 20180907
  Receipt Date: 20180907
  Transmission Date: 20190204
  Serious: Yes (Other)
  Sender: FDA-Public Use
  Company Number: NL-AUROBINDO-AUR-APL-2018-044352

PATIENT
  Sex: Male

DRUGS (1)
  1. VALSARTAN 160MG FILM-COATED TABLETS [Suspect]
     Active Substance: VALSARTAN
     Indication: PRODUCT USED FOR UNKNOWN INDICATION
     Dosage: 1 DOSAGE FORM, DAILY
     Route: 065
     Dates: start: 2011

REACTIONS (1)
  - Oesophageal adenocarcinoma [Recovered/Resolved with Sequelae]

NARRATIVE: CASE EVENT DATE: 20171030
